FAERS Safety Report 15570530 (Version 1)
Quarter: 2018Q4

REPORT INFORMATION
  Report Type: Spontaneous
  Country: US (occurrence: US)
  Receive Date: 20181031
  Receipt Date: 20181031
  Transmission Date: 20190205
  Serious: No
  Sender: FDA-Public Use
  Company Number: US-APOTEX-2018AP016059

PATIENT

DRUGS (2)
  1. FLUTICASONE PROPIONATE NASAL SPRAY USP [Suspect]
     Active Substance: FLUTICASONE PROPIONATE
     Indication: HYPERSENSITIVITY
     Dosage: UNK UNK, BID SOMETIMES 2 SPRAYS PER NOSTRIL AND SOMETIMES 1 SPRAY PER NOSTRIL
     Route: 065
     Dates: end: 201806
  2. FLUTICASONE PROPIONATE NASAL SPRAY USP [Suspect]
     Active Substance: FLUTICASONE PROPIONATE
     Indication: SINUS DISORDER
     Dosage: UNK UNK, QD SOMETIMES 2 SPRAYS PER NOSTRIL AND SOMETIMES 1 SPRAY PER NOSTRIL
     Route: 065
     Dates: end: 201806

REACTIONS (3)
  - Ocular hyperaemia [Not Recovered/Not Resolved]
  - Eye pruritus [Recovering/Resolving]
  - Eye pain [Recovered/Resolved]
